FAERS Safety Report 12146435 (Version 1)
Quarter: 2016Q1

REPORT INFORMATION
  Report Type: Spontaneous
  Country: CN (occurrence: CN)
  Receive Date: 20160304
  Receipt Date: 20160304
  Transmission Date: 20160526
  Serious: Yes (Other)
  Sender: FDA-Public Use
  Company Number: CN-SEBELA IRELAND LIMITED-2016SEB00060

PATIENT
  Age: 69 Year
  Sex: Male

DRUGS (5)
  1. BENZBROMARONE [Concomitant]
     Active Substance: BENZBROMARONE
  2. VITAMIN D3 [Concomitant]
     Active Substance: CHOLECALCIFEROL
  3. ALFACALCIDOL [Concomitant]
     Active Substance: ALFACALCIDOL
  4. LIDOCAINE. [Concomitant]
     Active Substance: LIDOCAINE
  5. ALLOPURINOL. [Suspect]
     Active Substance: ALLOPURINOL
     Indication: HYPERURICAEMIA
     Route: 065

REACTIONS (2)
  - Drug reaction with eosinophilia and systemic symptoms [Unknown]
  - Coronary artery disease [Unknown]
